FAERS Safety Report 21988045 (Version 1)
Quarter: 2023Q1

REPORT INFORMATION
  Report Type: Spontaneous
  Country: CA (occurrence: CA)
  Receive Date: 20230214
  Receipt Date: 20230214
  Transmission Date: 20230418
  Serious: Yes (Hospitalization, Other)
  Sender: FDA-Public Use
  Company Number: CA-002147023-NVSC2023CA028784

PATIENT
  Age: 59 Year
  Sex: Female

DRUGS (5)
  1. DEXAMETHASONE SODIUM PHOSPHATE [Suspect]
     Active Substance: DEXAMETHASONE SODIUM PHOSPHATE
     Indication: Product used for unknown indication
     Dosage: UNK
     Route: 065
  2. TEMODAL [Suspect]
     Active Substance: TEMOZOLOMIDE
     Indication: Product used for unknown indication
     Dosage: 85 MG, QD (1 EVERY 1 DAYS)
     Route: 048
  3. TEMODAL [Suspect]
     Active Substance: TEMOZOLOMIDE
     Indication: Glioblastoma
     Dosage: 85 MG, QD (1 EVERY 1 DAYS)
     Route: 048
  4. TEMODAL [Suspect]
     Active Substance: TEMOZOLOMIDE
     Dosage: 350 MG
     Route: 048
  5. TEMOZOLOMIDE [Suspect]
     Active Substance: TEMOZOLOMIDE
     Indication: Glioblastoma
     Dosage: 85 MG, QD (1 EVERY 1 DAYS)
     Route: 048

REACTIONS (6)
  - Adverse event [Not Recovered/Not Resolved]
  - Fatigue [Not Recovered/Not Resolved]
  - Nausea [Not Recovered/Not Resolved]
  - Malignant neoplasm progression [Not Recovered/Not Resolved]
  - Product intolerance [Not Recovered/Not Resolved]
  - Product substitution issue [Not Recovered/Not Resolved]
